FAERS Safety Report 9959829 (Version 1)
Quarter: 2014Q1

REPORT INFORMATION
  Report Type: Spontaneous
  Country: IN (occurrence: None)
  Receive Date: 20140227
  Receipt Date: 20140227
  Transmission Date: 20141002
  Serious: Yes (Other)
  Sender: FDA-Public Use
  Company Number: AUR-APL-2014-01982

PATIENT
  Age: 55 Year
  Sex: Male

DRUGS (1)
  1. ATENOLOL (ATENOLOL) [Suspect]
     Indication: HYPERTENSION
     Dosage: 50 MG (50 MG, 1 IN 1 D)

REACTIONS (14)
  - Hepatotoxicity [None]
  - Abdominal distension [None]
  - Local swelling [None]
  - Nausea [None]
  - Vomiting [None]
  - Malaise [None]
  - Decreased appetite [None]
  - Fatigue [None]
  - Abdominal discomfort [None]
  - Jaundice [None]
  - Prothrombin time [None]
  - Drug interaction [None]
  - Hepatocellular injury [None]
  - Cholestasis [None]
